FAERS Safety Report 17190917 (Version 1)
Quarter: 2019Q4

REPORT INFORMATION
  Report Type: Spontaneous
  Country: ES (occurrence: ES)
  Receive Date: 20191223
  Receipt Date: 20191223
  Transmission Date: 20200122
  Serious: Yes (Other)
  Sender: FDA-Public Use
  Company Number: ES-PFIZER INC-2019545275

PATIENT
  Age: 51 Year
  Sex: Male

DRUGS (6)
  1. PANITUMUMAB [Suspect]
     Active Substance: PANITUMUMAB
     Indication: ADENOCARCINOMA OF COLON
     Dosage: UNK UNK, CYCLIC
     Dates: start: 20160620
  2. PANITUMUMAB [Suspect]
     Active Substance: PANITUMUMAB
     Dosage: UNK UNK, CYCLIC
     Dates: start: 20170710, end: 2017
  3. FOLINIC ACID [Concomitant]
     Active Substance: LEUCOVORIN
     Indication: ADENOCARCINOMA OF COLON
     Dosage: UNK, CYCLIC
     Dates: start: 20160620
  4. 5-FU [FLUOROURACIL] [Concomitant]
     Active Substance: FLUOROURACIL
     Indication: ADENOCARCINOMA OF COLON
     Dosage: UNK UNK, CYCLIC
     Dates: start: 20160620
  5. OXALIPLATIN. [Suspect]
     Active Substance: OXALIPLATIN
     Indication: ADENOCARCINOMA OF COLON
     Dosage: UNK UNK, CYCLIC
     Dates: start: 20160620
  6. PANITUMUMAB [Suspect]
     Active Substance: PANITUMUMAB
     Dosage: UNK UNK, CYCLIC
     Dates: start: 20181112

REACTIONS (9)
  - Neutropenia [Unknown]
  - Loss of consciousness [Unknown]
  - Dysgeusia [Recovered/Resolved]
  - Neoplasm progression [Unknown]
  - Thrombocytopenia [Unknown]
  - Neurotoxicity [Recovered/Resolved]
  - Rash [Unknown]
  - Hypoglycaemia [Unknown]
  - Stomatitis [Unknown]

NARRATIVE: CASE EVENT DATE: 2016
